FAERS Safety Report 9407985 (Version 1)
Quarter: 2013Q1

REPORT INFORMATION
  Report Type: Spontaneous
  Country: US (occurrence: None)
  Receive Date: 20130304
  Receipt Date: 20130304
  Transmission Date: 20140127
  Serious: Yes (Hospitalization)
  Sender: FDA-Public Use
  Company Number: 0220417

PATIENT
  Age: 33 Year
  Sex: Female

DRUGS (5)
  1. TACHOSIL (HUMAN FIBRINOGEN, HUMAN THROMBIN) (POULTICE OR PATCH) (HUMAN FIBRINOGEN, HUMAN THROMBIN) [Suspect]
     Route: 015
     Dates: start: 20110223, end: 20110223
  2. TACHOSIL (HUMAN FIBRINOGEN, HUMAN THROMBIN) (POULTICE OR PATCH) (HUMAN FIBRINOGEN, HUMAN THROMBIN) [Suspect]
     Route: 015
     Dates: start: 20110223, end: 20110223
  3. TRACTOCILE [Suspect]
     Route: 042
     Dates: start: 20110223, end: 20110308
  4. CELESTONE CRONODOSE [Suspect]
     Route: 030
     Dates: start: 20110223, end: 20110224
  5. PROGESTERONE [Suspect]
     Route: 067
     Dates: start: 20110301, end: 20110309

REACTIONS (8)
  - Metrorrhagia [None]
  - Uterine disorder [None]
  - Off label use [None]
  - Exposure during pregnancy [None]
  - Abdominal pain [None]
  - Caesarean section [None]
  - Premature delivery [None]
  - Labour complication [None]
